FAERS Safety Report 15795701 (Version 1)
Quarter: 2019Q1

REPORT INFORMATION
  Report Type: Spontaneous
  Country: DK (occurrence: DK)
  Receive Date: 20190107
  Receipt Date: 20190107
  Transmission Date: 20190417
  Serious: Yes (Other)
  Sender: FDA-Public Use
  Company Number: DK-MYLANLABS-2019M1000048

PATIENT
  Age: 74 Year
  Sex: Female

DRUGS (1)
  1. GABAPENTIN. [Suspect]
     Active Substance: GABAPENTIN
     Indication: BACK PAIN
     Dosage: 900 MILLIGRAM, QD
     Route: 048
     Dates: start: 20160424, end: 20160428

REACTIONS (9)
  - Eczema [Unknown]
  - Carpal tunnel decompression [Recovered/Resolved]
  - Peripheral coldness [Unknown]
  - Oedema peripheral [Unknown]
  - Carpal tunnel syndrome [Unknown]
  - Sensory disturbance [Unknown]
  - Rash [Unknown]
  - Paraesthesia [Unknown]
  - Hypersensitivity [Unknown]

NARRATIVE: CASE EVENT DATE: 201604
